FAERS Safety Report 22815506 (Version 2)
Quarter: 2024Q2

REPORT INFORMATION
  Report Type: Spontaneous
  Country: JP (occurrence: JP)
  Receive Date: 20230811
  Receipt Date: 20240401
  Transmission Date: 20240716
  Serious: Yes (Other)
  Sender: FDA-Public Use
  Company Number: JP-SUN PHARMACEUTICAL INDUSTRIES LTD-2023R1-403783

PATIENT
  Age: 77 Year
  Sex: Female

DRUGS (2)
  1. FAMOTIDINE [Interacting]
     Active Substance: FAMOTIDINE
     Indication: Haemolytic anaemia
     Dosage: 10 MILLIGRAM, BID
     Route: 048
  2. ALECTINIB [Interacting]
     Active Substance: ALECTINIB
     Indication: Haemolytic anaemia
     Dosage: UNK
     Route: 065

REACTIONS (2)
  - Haemolytic anaemia [Unknown]
  - Drug interaction [Unknown]
